FAERS Safety Report 10272382 (Version 1)
Quarter: 2014Q2

REPORT INFORMATION
  Report Type: Spontaneous
  Country: US (occurrence: None)
  Receive Date: 20140627
  Receipt Date: 20140627
  Transmission Date: 20141212
  Serious: Yes (Other)
  Sender: FDA-Public Use
  Company Number: None

PATIENT
  Age: 31 Year
  Sex: Female
  Weight: 56.4 kg

DRUGS (1)
  1. IRON SUCROSE [Suspect]
     Dosage: SQ
     Dates: start: 20131218, end: 20131218

REACTIONS (1)
  - Anaphylactoid reaction [None]
